FAERS Safety Report 15960397 (Version 1)
Quarter: 2019Q1

REPORT INFORMATION
  Report Type: Spontaneous
  Country: US (occurrence: US)
  Receive Date: 20190214
  Receipt Date: 20190214
  Transmission Date: 20190417
  Serious: No
  Sender: FDA-Public Use
  Company Number: US-ROCHE-2126877

PATIENT
  Sex: Male

DRUGS (1)
  1. ERIVEDGE [Suspect]
     Active Substance: VISMODEGIB
     Indication: NEOPLASM SKIN
     Dosage: DAILY; ONGOING: YES
     Route: 048
     Dates: start: 20180124

REACTIONS (3)
  - Nausea [Unknown]
  - Decreased appetite [Unknown]
  - Asthenia [Unknown]
